FAERS Safety Report 9719568 (Version 1)
Quarter: 2013Q4

REPORT INFORMATION
  Report Type: Spontaneous
  Country: US (occurrence: US)
  Receive Date: 20131128
  Receipt Date: 20131128
  Transmission Date: 20140711
  Serious: No
  Sender: FDA-Public Use
  Company Number: US-BIOGENIDEC-2012BI060095

PATIENT
  Sex: Female

DRUGS (2)
  1. AVONEX [Suspect]
     Indication: MULTIPLE SCLEROSIS
     Route: 030
  2. AVONEX [Suspect]
     Indication: MULTIPLE SCLEROSIS
     Route: 030

REACTIONS (11)
  - Stress [Unknown]
  - Back disorder [Unknown]
  - Smoke sensitivity [Not Recovered/Not Resolved]
  - Aphasia [Recovered/Resolved]
  - Sinusitis [Not Recovered/Not Resolved]
  - Dysphonia [Not Recovered/Not Resolved]
  - Oropharyngeal pain [Not Recovered/Not Resolved]
  - Aphonia [Unknown]
  - Fatigue [Unknown]
  - Multiple sclerosis relapse [Unknown]
  - Headache [Not Recovered/Not Resolved]
